FAERS Safety Report 11523417 (Version 1)
Quarter: 2015Q3

REPORT INFORMATION
  Report Type: Spontaneous
  Country: US (occurrence: US)
  Receive Date: 20150918
  Receipt Date: 20150918
  Transmission Date: 20151125
  Serious: Yes (Other)
  Sender: FDA-Public Use
  Company Number: US-TAKEDA-TPA2011A06259

PATIENT

DRUGS (8)
  1. GLYBURIDE. [Concomitant]
     Active Substance: GLYBURIDE
  2. LIPITOR [Concomitant]
     Active Substance: ATORVASTATIN CALCIUM
  3. FLOMIX [Concomitant]
  4. NOVOLIN [Concomitant]
     Active Substance: INSULIN HUMAN
  5. METFORMIN [Concomitant]
     Active Substance: METFORMIN HYDROCHLORIDE
     Dates: start: 200906, end: 201104
  6. SEPTRA DS [Concomitant]
     Active Substance: SULFAMETHOXAZOLE\TRIMETHOPRIM
     Dates: start: 20100113
  7. DIABETA [Concomitant]
     Active Substance: GLYBURIDE
     Dates: start: 200805, end: 201110
  8. ACTOS [Suspect]
     Active Substance: PIOGLITAZONE HYDROCHLORIDE
     Indication: TYPE 2 DIABETES MELLITUS
     Dates: start: 20090206, end: 201108

REACTIONS (6)
  - Bladder cancer [Unknown]
  - Micturition urgency [Unknown]
  - Urinary tract infection [Unknown]
  - Urinary incontinence [Unknown]
  - Cystitis [Unknown]
  - Dysuria [Unknown]

NARRATIVE: CASE EVENT DATE: 2007
